FAERS Safety Report 7798134-7 (Version None)
Quarter: 2011Q4

REPORT INFORMATION
  Report Type: 
  Country: None (occurrence: None)
  Receive Date: 20111005
  Receipt Date: 20110927
  Transmission Date: 20120403
  Serious: Yes (Hospitalization)
  Sender: FDA-Public Use
  Company Number: US-KINGPHARMUSA00001-K201101115

PATIENT
  Sex: Male

DRUGS (1)
  1. EPIPEN [Suspect]
     Indication: ARTHROPOD STING
     Dosage: 0.3 MG, SINGLE
     Route: 030
     Dates: start: 20110917, end: 20110917

REACTIONS (3)
  - GASTRIC DISORDER [None]
  - ANXIETY [None]
  - DRUG INEFFECTIVE [None]
